FAERS Safety Report 6971909-X (Version None)
Quarter: 2010Q3

REPORT INFORMATION
  Report Type: 
  Country: None (occurrence: None)
  Receive Date: 20100908
  Receipt Date: 20100908
  Transmission Date: 20110219
  Serious: Yes (Other)
  Sender: FDA-Public Use
  Company Number: None

PATIENT
  Age: 52 Year
  Sex: Female
  Weight: 106 kg

DRUGS (1)
  1. OXYBUTYNIN [Suspect]
     Indication: HYPERTONIC BLADDER
     Dosage: 3.9 MG OTHER TOP
     Route: 061
     Dates: start: 20100802, end: 20100809

REACTIONS (3)
  - DRUG INTOLERANCE [None]
  - DRY MOUTH [None]
  - FEELING HOT [None]
